FAERS Safety Report 4866603-5 (Version None)
Quarter: 2005Q4

REPORT INFORMATION
  Report Type: 
  Country: None (occurrence: None)
  Receive Date: 20051227
  Receipt Date: 20051216
  Transmission Date: 20060501
  Serious: Yes (Other)
  Sender: FDA-Public Use
  Company Number: US-JNJFOC-20051204170

PATIENT
  Sex: Male
  Weight: 72.12 kg

DRUGS (11)
  1. REMICADE [Suspect]
     Route: 042
  2. REMICADE [Suspect]
     Route: 042
  3. REMICADE [Suspect]
     Indication: RHEUMATOID ARTHRITIS
     Dosage: ON REMICADE FOR 6 MONTHS PRIOR TO MARCH 2004.
     Route: 042
  4. CELEBREX [Concomitant]
  5. METHOTREXATE [Concomitant]
  6. ADVAIR DISKUS 250/50 [Concomitant]
  7. ADVAIR DISKUS 250/50 [Concomitant]
     Dosage: 250/50
  8. COMBIVENT [Concomitant]
  9. COMBIVENT [Concomitant]
     Dosage: DOSE=PUFF
  10. VASPIRE [Concomitant]
  11. PREVACID [Concomitant]

REACTIONS (1)
  - NON-HODGKIN'S LYMPHOMA [None]
